APPROVED DRUG PRODUCT: CELESTONE SOLUSPAN
Active Ingredient: BETAMETHASONE ACETATE; BETAMETHASONE SODIUM PHOSPHATE
Strength: 3MG/ML;EQ 3MG BASE/ML
Dosage Form/Route: INJECTABLE;INJECTION
Application: N014602 | Product #001 | TE Code: AB
Applicant: ORGANON LLC A SUB OF ORGANON AND CO
Approved: Approved Prior to Jan 1, 1982 | RLD: Yes | RS: Yes | Type: RX